FAERS Safety Report 18426958 (Version 1)
Quarter: 2020Q4

REPORT INFORMATION
  Report Type: Spontaneous
  Country: US (occurrence: US)
  Receive Date: 20201026
  Receipt Date: 20201026
  Transmission Date: 20210114
  Serious: No
  Sender: FDA-Public Use
  Company Number: None

PATIENT
  Age: 50 Year
  Sex: Male

DRUGS (1)
  1. TALTZ [Suspect]
     Active Substance: IXEKIZUMAB
     Indication: PSORIASIS
     Dosage: FREQUENCY: WEEK 12, THEN EVERY 4 WEEKS AS DIRECTED.
     Route: 058
     Dates: start: 202004

REACTIONS (2)
  - Therapy interrupted [None]
  - SARS-CoV-2 test positive [None]
